FAERS Safety Report 4433412-0 (Version None)
Quarter: 2004Q3

REPORT INFORMATION
  Report Type: 
  Country: None (occurrence: None)
  Receive Date: 20040824
  Receipt Date: 20040813
  Transmission Date: 20050211
  Serious: Yes (Life-Threatening, Hospitalization, Disabling)
  Sender: FDA-Public Use
  Company Number: 2004055742

PATIENT
  Age: 59 Year
  Sex: Male

DRUGS (4)
  1. VIAGRA [Suspect]
     Indication: ERECTILE DYSFUNCTION
     Dosage: 25 MG (25 MG, AS NEEDED), ORAL
     Dates: start: 20040804
  2. HMG COA REDUCTASE INHIBITORS (HMG COA REDUCTASE INHIBITORS) [Concomitant]
  3. ALPHA-ADRENOCEPTOR BLOCKING AGENTS (ALPHA-ADRENOCEPTOR BLOCKING AGENTS [Concomitant]
  4. ASPIRIN [Concomitant]

REACTIONS (1)
  - RHABDOMYOLYSIS [None]
